FAERS Safety Report 16334094 (Version 1)
Quarter: 2019Q2

REPORT INFORMATION
  Report Type: Spontaneous
  Country: US (occurrence: US)
  Receive Date: 20190520
  Receipt Date: 20190520
  Transmission Date: 20190711
  Serious: Yes (Other)
  Sender: FDA-Public Use
  Company Number: US-FERRINGPH-2018FE02954

PATIENT

DRUGS (1)
  1. CERVIDIL [Suspect]
     Active Substance: DINOPROSTONE
     Indication: INDUCTION OF CERVIX RIPENING
     Dosage: 10 MG, ONCE/SINGLE
     Route: 064
     Dates: start: 20180427, end: 20180427

REACTIONS (1)
  - Tachycardia foetal [Recovered/Resolved]

NARRATIVE: CASE EVENT DATE: 20180427
